FAERS Safety Report 5762266-5 (Version None)
Quarter: 2008Q2

REPORT INFORMATION
  Report Type: 
  Country: None (occurrence: None)
  Receive Date: 20080609
  Receipt Date: 20080530
  Transmission Date: 20081010
  Serious: Yes (Other)
  Sender: FDA-Public Use
  Company Number: BE-ELI_LILLY_AND_COMPANY-BE200806000027

PATIENT
  Age: 41 Year
  Sex: Female

DRUGS (5)
  1. ZYPREXA [Suspect]
     Indication: MANIA
     Dosage: 10 MG, DAILY (1/D)
     Route: 048
     Dates: start: 20080301
  2. SERLAIN [Concomitant]
     Indication: DEPRESSION
  3. ACTONEL [Concomitant]
     Indication: OSTEOPOROSIS
  4. CALCIUM [Concomitant]
     Indication: OSTEOPOROSIS
  5. ALPRAZOLAM [Concomitant]
     Indication: ANXIETY
     Dosage: UNK UNK, AS NEEDED

REACTIONS (3)
  - BREAST CANCER [None]
  - BREAST DISCOMFORT [None]
  - HYPERPROLACTINAEMIA [None]
